FAERS Safety Report 10045662 (Version 1)
Quarter: 2014Q1

REPORT INFORMATION
  Report Type: Spontaneous
  Country: US (occurrence: US)
  Receive Date: 20140328
  Receipt Date: 20140328
  Transmission Date: 20141002
  Serious: No
  Sender: FDA-Public Use
  Company Number: US-009507513-1403USA012726

PATIENT
  Sex: 0

DRUGS (2)
  1. JANUVIA [Suspect]
  2. METFORMIN [Concomitant]

REACTIONS (1)
  - Hepatic enzyme increased [Unknown]
